FAERS Safety Report 14954350 (Version 4)
Quarter: 2018Q3

REPORT INFORMATION
  Report Type: Spontaneous
  Country: CN (occurrence: CN)
  Receive Date: 20180530
  Receipt Date: 20180917
  Transmission Date: 20181010
  Serious: Yes (Death, Life-Threatening, Hospitalization, Disabling)
  Sender: FDA-Public Use
  Company Number: CN-GEHC-2018CSU001957

PATIENT

DRUGS (2)
  1. AMLODIPINE BESYLATE. [Concomitant]
     Active Substance: AMLODIPINE BESYLATE
     Indication: CHEST DISCOMFORT
     Route: 048
  2. OMNIPAQUE [Suspect]
     Active Substance: IOHEXOL
     Indication: CHEST DISCOMFORT
     Dosage: 90 ML, SINGLE
     Route: 042
     Dates: start: 20180517, end: 20180517

REACTIONS (3)
  - Cardio-respiratory arrest [Fatal]
  - Anaphylactic shock [Not Recovered/Not Resolved]
  - Hypoxic-ischaemic encephalopathy [Not Recovered/Not Resolved]

NARRATIVE: CASE EVENT DATE: 20180517
